FAERS Safety Report 4500110-4 (Version None)
Quarter: 2004Q4

REPORT INFORMATION
  Report Type: 
  Country: None (occurrence: None)
  Receive Date: 20041112
  Receipt Date: 20041102
  Transmission Date: 20050328
  Serious: Yes (Hospitalization)
  Sender: FDA-Public Use
  Company Number: FR-GLAXOSMITHKLINE-B0350316A

PATIENT
  Age: 57 Year
  Sex: Male

DRUGS (2)
  1. FORTUM [Suspect]
     Indication: ILL-DEFINED DISORDER
     Route: 042
     Dates: start: 20040802, end: 20040824
  2. TAVANIC [Suspect]
     Indication: ILL-DEFINED DISORDER
     Route: 042
     Dates: start: 20040802, end: 20040817

REACTIONS (6)
  - CONFUSIONAL STATE [None]
  - DISORIENTATION [None]
  - HALLUCINATION, VISUAL [None]
  - HYPONATRAEMIA [None]
  - MENINGITIS [None]
  - SEPSIS [None]
